FAERS Safety Report 4518430-6 (Version None)
Quarter: 2004Q4

REPORT INFORMATION
  Report Type: 
  Country: None (occurrence: None)
  Receive Date: 20041202
  Receipt Date: 20041124
  Transmission Date: 20050328
  Serious: Yes (Hospitalization)
  Sender: FDA-Public Use
  Company Number: TPG2004A00302

PATIENT
  Age: 76 Year
  Sex: Male

DRUGS (1)
  1. TRENANTONE      (LEUPROLIDE ACETATE) [Suspect]
     Indication: PROSTATE CANCER
     Dosage: 11.25 MG (11.25 MG, 1 IN 3 M) SUBCUTANEOUS
     Route: 058
     Dates: start: 20040529

REACTIONS (10)
  - AGGRESSION [None]
  - ASTHENIA [None]
  - CONFUSIONAL STATE [None]
  - DELIRIUM [None]
  - MACROANGIOPATHY [None]
  - MICROANGIOPATHY [None]
  - NERVOUSNESS [None]
  - PSYCHOTIC DISORDER [None]
  - SENILE DEMENTIA [None]
  - TRANSIENT PSYCHOSIS [None]
